FAERS Safety Report 13292753 (Version 9)
Quarter: 2017Q3

REPORT INFORMATION
  Report Type: Spontaneous
  Country: US (occurrence: US)
  Receive Date: 20170303
  Receipt Date: 20170925
  Transmission Date: 20171127
  Serious: Yes (Hospitalization, Congenital Anomaly, Other)
  Sender: FDA-Public Use
  Company Number: PHEH2017US006405

PATIENT
  Sex: Male

DRUGS (2)
  1. ONDANSETRON [Suspect]
     Active Substance: ONDANSETRON
     Indication: FOETAL EXPOSURE DURING PREGNANCY
     Route: 064
  2. ZOFRAN [Suspect]
     Active Substance: ONDANSETRON HYDROCHLORIDE
     Indication: FOETAL EXPOSURE DURING PREGNANCY
     Dosage: MOTHER DOSE: 08 MG, UNK
     Route: 064

REACTIONS (39)
  - Pulmonary oedema [Unknown]
  - Neonatal respiratory distress syndrome [Unknown]
  - Head injury [Unknown]
  - Atrial septal defect [Unknown]
  - Left atrial dilatation [Unknown]
  - Lymphadenopathy [Unknown]
  - Abscess [Unknown]
  - Ocular icterus [Unknown]
  - Foetal growth restriction [Unknown]
  - Ileus [Unknown]
  - Conjunctivitis [Unknown]
  - Cough [Unknown]
  - Sinusitis [Unknown]
  - Pyrexia [Unknown]
  - Aorticopulmonary septal defect [Unknown]
  - Cardiac failure congestive [Unknown]
  - Mitral valve incompetence [Unknown]
  - Foetal exposure during pregnancy [Unknown]
  - Eye swelling [Unknown]
  - Gastroenteritis [Unknown]
  - Dyspnoea [Unknown]
  - Failure to thrive [Unknown]
  - Impaired gastric emptying [Unknown]
  - Pulmonary valve incompetence [Unknown]
  - Pharyngeal ulceration [Unknown]
  - Tricuspid valve incompetence [Unknown]
  - Pleural effusion [Unknown]
  - Poor feeding infant [Unknown]
  - Learning disorder [Unknown]
  - Gastrooesophageal reflux disease [Unknown]
  - Cardiomegaly [Unknown]
  - Jaundice neonatal [Unknown]
  - Aortic stenosis [Unknown]
  - Pulmonary artery stenosis [Unknown]
  - Left atrial hypertrophy [Unknown]
  - Atelectasis neonatal [Unknown]
  - Cardiac murmur [Unknown]
  - Pulmonary valve stenosis [Unknown]
  - Dehydration [Unknown]
